FAERS Safety Report 5291800-7 (Version None)
Quarter: 2007Q2

REPORT INFORMATION
  Report Type: 
  Country: None (occurrence: None)
  Receive Date: 20070403
  Receipt Date: 20070323
  Transmission Date: 20071010
  Serious: Yes (Death, Life-Threatening)
  Sender: FDA-Public Use
  Company Number: CLOF-10466

PATIENT
  Age: 68 Year
  Sex: Male

DRUGS (3)
  1. CYTARABINE [Suspect]
     Indication: MYELOID LEUKAEMIA
     Dosage: 2020 MG QD X 5 IV
     Route: 042
     Dates: start: 20070301, end: 20070304
  2. CLOFARABINE (BLINDED) [Suspect]
     Indication: MYELOID LEUKAEMIA
     Dosage: 61 MG QD X 5 IV
     Route: 042
     Dates: start: 20070301, end: 20070304
  3. AMBISOME [Concomitant]

REACTIONS (7)
  - DIALYSIS [None]
  - HYPERBILIRUBINAEMIA [None]
  - HYPOTENSION [None]
  - RENAL FAILURE [None]
  - RENAL TUBULAR NECROSIS [None]
  - SEPSIS [None]
  - TUMOUR LYSIS SYNDROME [None]
